FAERS Safety Report 25864274 (Version 3)
Quarter: 2025Q4

REPORT INFORMATION
  Report Type: Spontaneous
  Country: US (occurrence: US)
  Receive Date: 20250930
  Receipt Date: 20251112
  Transmission Date: 20260117
  Serious: No
  Sender: BRISTOL-MYERS SQUIBB COMPANY
  Company Number: US-BRISTOL-MYERS SQUIBB COMPANY-2025-132620

PATIENT
  Age: 80 Year
  Sex: Female

DRUGS (2)
  1. POMALYST [Suspect]
     Active Substance: POMALIDOMIDE
     Indication: Plasma cell myeloma recurrent
     Dosage: TAKE 1 WHOLE CAPSULE BY MOUTH DAILY ON DAYS 1-21 OF A 28-DAY CYCLE
     Route: 048
  2. POMALYST [Suspect]
     Active Substance: POMALIDOMIDE
     Dosage: TAKE 1 WHOLE CAPSULE BY MOUTH DAILY ON DAYS 1-21 OF A 28-DAY CYCLE
     Route: 048

REACTIONS (4)
  - White blood cell count decreased [Recovering/Resolving]
  - Product dose omission issue [Unknown]
  - Product prescribing issue [Unknown]
  - Diarrhoea [Recovering/Resolving]
